FAERS Safety Report 9869897 (Version 3)
Quarter: 2014Q1

REPORT INFORMATION
  Report Type: Spontaneous
  Country: DK (occurrence: None)
  Receive Date: 20140131
  Receipt Date: 20140227
  Transmission Date: 20141002
  Serious: Yes (Hospitalization)
  Sender: FDA-Public Use
  Company Number: AUR-APL-2014-00790

PATIENT
  Age: 44 Year
  Sex: Male

DRUGS (5)
  1. METFORMIN [Suspect]
     Indication: PRODUCT USED FOR UNKNOWN INDICATION
     Dosage: 2000 MG (1000 MG, 2 IN 1), UNKNOWN
  2. SIMVASTATIN (SIMVASTATIN) [Suspect]
     Indication: PRODUCT USED FOR UNKNOWN INDICATION
     Dosage: 120 MG (40 MG, 3 IN 1 D), UNKNOWN
  3. NOVOMIX [Suspect]
     Indication: TYPE 2 DIABETES MELLITUS
  4. VICTOZA (LIRAGLUTIDE) [Suspect]
     Indication: PRODUCT USED FOR UNKNOWN INDICATION
  5. HJERTEMAGNYL [Suspect]
     Indication: PRODUCT USED FOR UNKNOWN INDICATION

REACTIONS (7)
  - Eye pruritus [None]
  - Dizziness [None]
  - Malaise [None]
  - Heart rate decreased [None]
  - Hyperhidrosis [None]
  - Visual acuity reduced [None]
  - Micturition urgency [None]
